APPROVED DRUG PRODUCT: DURICEF
Active Ingredient: CEFADROXIL/CEFADROXIL HEMIHYDRATE
Strength: EQ 250MG BASE
Dosage Form/Route: CAPSULE;ORAL
Application: N050512 | Product #002
Applicant: WARNER CHILCOTT INC
Approved: Approved Prior to Jan 1, 1982 | RLD: No | RS: No | Type: DISCN